FAERS Safety Report 5310693-2 (Version None)
Quarter: 2007Q2

REPORT INFORMATION
  Report Type: 
  Country: None (occurrence: None)
  Receive Date: 20070428
  Receipt Date: 20070417
  Transmission Date: 20071010
  Serious: Yes (Hospitalization)
  Sender: FDA-Public Use
  Company Number: DE-PFIZER INC-2007030994

PATIENT
  Age: 78 Year
  Sex: Female

DRUGS (5)
  1. CELEBREX [Suspect]
  2. MARCUMAR [Concomitant]
  3. PARACETAMOL [Concomitant]
  4. CALCIUM CHLORIDE [Concomitant]
  5. VITAMIN D3 [Concomitant]

REACTIONS (1)
  - PELVIC VENOUS THROMBOSIS [None]
